FAERS Safety Report 15992142 (Version 3)
Quarter: 2019Q1

REPORT INFORMATION
  Report Type: Spontaneous
  Country: JP (occurrence: JP)
  Receive Date: 20190221
  Receipt Date: 20190313
  Transmission Date: 20190418
  Serious: Yes (Disabling)
  Sender: FDA-Public Use
  Company Number: JP-DSJP-DSJ-2019-105876

PATIENT

DRUGS (6)
  1. LIXIANA OD TABLETS 30MG [Suspect]
     Active Substance: EDOXABAN TOSYLATE
     Indication: ATRIAL FIBRILLATION
     Dosage: 30 MG, QD
     Route: 048
     Dates: start: 20190111
  2. AZOSEMIDE [Concomitant]
     Active Substance: AZOSEMIDE
     Dosage: 30 MG, QD
     Route: 065
     Dates: start: 20190111
  3. ALDACTONE A [Concomitant]
     Active Substance: SPIRONOLACTONE
     Dosage: 25 MG, QD
     Route: 065
     Dates: start: 20190111
  4. SAMSCA [Concomitant]
     Active Substance: TOLVAPTAN
     Dosage: 3.75 MG, QD
     Route: 065
     Dates: start: 20190111
  5. BISOPROLOL                         /00802602/ [Concomitant]
     Active Substance: BISOPROLOL
     Dosage: 2.5 MG, QD
     Route: 065
  6. BEPRICOR [Concomitant]
     Active Substance: BEPRIDIL
     Dosage: 50 MG, BID
     Route: 065
     Dates: start: 20190111

REACTIONS (1)
  - Cerebral infarction [Recovered/Resolved with Sequelae]

NARRATIVE: CASE EVENT DATE: 20190121
